FAERS Safety Report 21112142 (Version 1)
Quarter: 2022Q3

REPORT INFORMATION
  Report Type: Spontaneous
  Country: US (occurrence: None)
  Receive Date: 20220721
  Receipt Date: 20220721
  Transmission Date: 20221027
  Serious: Yes (Other)
  Sender: FDA-Public Use
  Company Number: None

PATIENT
  Age: 67 Year
  Sex: Female
  Weight: 65.25 kg

DRUGS (1)
  1. CITROMA MAGNESIUM CITRATE [Suspect]
     Active Substance: MAGNESIUM CITRATE
     Indication: Gastrointestinal disorder

REACTIONS (16)
  - Herpes zoster [None]
  - Pupillary disorder [None]
  - Mastoiditis [None]
  - Acute sinusitis [None]
  - Eye discharge [None]
  - Burning sensation [None]
  - Oedema peripheral [None]
  - Oedema peripheral [None]
  - Feeling hot [None]
  - Micturition urgency [None]
  - Condition aggravated [None]
  - Hyperacusis [None]
  - Motion sickness [None]
  - Balance disorder [None]
  - Brain injury [None]
  - Product contamination [None]

NARRATIVE: CASE EVENT DATE: 20220313
